FAERS Safety Report 5665550-9 (Version None)
Quarter: 2008Q1

REPORT INFORMATION
  Report Type: 
  Country: None (occurrence: None)
  Receive Date: 20080314
  Receipt Date: 20080207
  Transmission Date: 20080703
  Serious: No
  Sender: FDA-Public Use
  Company Number: US-ABBOTT-07P-163-0428627-00

PATIENT
  Sex: Female
  Weight: 56.75 kg

DRUGS (5)
  1. HUMIRA [Suspect]
     Indication: CROHN'S DISEASE
     Dosage: LOADING DOSE
     Route: 058
     Dates: start: 20070901, end: 20070901
  2. HUMIRA [Suspect]
     Route: 058
  3. HUMIRA [Suspect]
     Route: 058
     Dates: end: 20080103
  4. ALENDRONATE SODIUM [Concomitant]
     Indication: OSTEOPENIA
  5. PARACETAMOL [Concomitant]
     Indication: PAIN
     Route: 048

REACTIONS (4)
  - ALOPECIA [None]
  - CHEST DISCOMFORT [None]
  - FATIGUE [None]
  - HYPERSOMNIA [None]
